FAERS Safety Report 7752870-7 (Version None)
Quarter: 2011Q3

REPORT INFORMATION
  Report Type: 
  Country: None (occurrence: None)
  Receive Date: 20110915
  Receipt Date: 20110913
  Transmission Date: 20111222
  Serious: Yes (Life-Threatening, Hospitalization, Other)
  Sender: FDA-Public Use
  Company Number: PHHY2011FR34789

PATIENT
  Sex: Female

DRUGS (1)
  1. EXTAVIA [Suspect]
     Indication: MULTIPLE SCLEROSIS
     Dosage: 1 ML, QOD
     Route: 058

REACTIONS (8)
  - URINARY INCONTINENCE [None]
  - STRESS [None]
  - ABDOMINAL PAIN UPPER [None]
  - ANXIETY [None]
  - DIPLOPIA [None]
  - INFECTIOUS PERITONITIS [None]
  - GAIT DISTURBANCE [None]
  - FEELING DRUNK [None]
